FAERS Safety Report 10271205 (Version 1)
Quarter: 2014Q3

REPORT INFORMATION
  Report Type: Spontaneous
  Country: FR (occurrence: FR)
  Receive Date: 20140701
  Receipt Date: 20140701
  Transmission Date: 20150326
  Serious: Yes (Hospitalization)
  Sender: FDA-Public Use
  Company Number: FR-SA-2014SA081525

PATIENT
  Age: 82 Year
  Sex: Female

DRUGS (10)
  1. LEVOTHYROX [Concomitant]
     Active Substance: LEVOTHYROXINE
     Dosage: FORM: SCORED TABLET
  2. DAFALGAN [Concomitant]
     Active Substance: ACETAMINOPHEN
  3. SKENAN [Suspect]
     Active Substance: MORPHINE SULFATE
     Indication: INFLAMMATORY PAIN
     Dosage: FORM- PROLONGED RELEASE MICROGRANULES CAPSULE
     Route: 048
     Dates: start: 20140527, end: 20140527
  4. ACTISKENAN [Suspect]
     Active Substance: MORPHINE SULFATE
     Indication: INFLAMMATORY PAIN
     Route: 048
     Dates: start: 20140527, end: 20140527
  5. MEMANTINE [Concomitant]
     Active Substance: MEMANTINE
  6. KARDEGIC [Concomitant]
     Active Substance: ASPIRIN LYSINE
  7. DIFFU K [Suspect]
     Active Substance: POTASSIUM CHLORIDE
     Indication: PRODUCT USED FOR UNKNOWN INDICATION
     Route: 048
     Dates: start: 20130625, end: 20140527
  8. NEBIVOLOL [Concomitant]
     Active Substance: NEBIVOLOL
  9. APROVEL [Suspect]
     Active Substance: IRBESARTAN
     Indication: HYPERTENSION
     Route: 048
     Dates: start: 20130626, end: 20140527
  10. INEXIUM [Concomitant]
     Active Substance: ESOMEPRAZOLE

REACTIONS (4)
  - Renal failure acute [Recovered/Resolved]
  - Femoral neck fracture [Unknown]
  - Hyperkalaemia [Recovered/Resolved]
  - Fall [Unknown]

NARRATIVE: CASE EVENT DATE: 201405
